FAERS Safety Report 10664431 (Version 1)
Quarter: 2014Q4

REPORT INFORMATION
  Report Type: Spontaneous
  Country: US (occurrence: US)
  Receive Date: 20141219
  Receipt Date: 20141219
  Transmission Date: 20150529
  Serious: Yes (Other)
  Sender: FDA-Public Use
  Company Number: US-SA-2014SA171517

PATIENT
  Age: 5 Year
  Sex: Male
  Weight: 17.7 kg

DRUGS (1)
  1. LUMIZYME [Suspect]
     Active Substance: ALGLUCOSIDASE ALFA
     Route: 042
     Dates: start: 20141103

REACTIONS (5)
  - Lung infection [Unknown]
  - Upper respiratory tract infection [Recovered/Resolved]
  - Wheezing [Recovered/Resolved]
  - Respiratory muscle weakness [Recovered/Resolved]
  - Oxygen consumption increased [Recovered/Resolved]

NARRATIVE: CASE EVENT DATE: 20141117
